FAERS Safety Report 4976169-7 (Version None)
Quarter: 2006Q2

REPORT INFORMATION
  Report Type: 
  Country: None (occurrence: None)
  Receive Date: 20060412
  Receipt Date: 20060331
  Transmission Date: 20061013
  Serious: Yes (Death, Life-Threatening, Hospitalization)
  Sender: FDA-Public Use
  Company Number: CLOF-10165

PATIENT
  Age: 70 Year
  Sex: Female

DRUGS (17)
  1. CLOFARABINE [Suspect]
     Indication: ACUTE MYELOID LEUKAEMIA
     Dosage: 30 MG/M2 QD X 5 IV
     Route: 042
     Dates: start: 20051110, end: 20051114
  2. CASPOFUNGIN [Concomitant]
  3. ACYCLOVIR [Concomitant]
  4. MAGNESIUM [Concomitant]
  5. POTASSIUM [Concomitant]
  6. CALCIUM GLUCONATE [Concomitant]
  7. AMIODARONE [Concomitant]
  8. LEVOFLOXCIN [Concomitant]
  9. IMIPENEM [Concomitant]
  10. MEROPENEM [Concomitant]
  11. TAZOCIN [Concomitant]
  12. VANCOMYCIN [Concomitant]
  13. GENTAMICIN [Concomitant]
  14. FLUCLOXACILLIN [Concomitant]
  15. FUROSEMIDE [Concomitant]
  16. LINEZOID [Concomitant]
  17. NEUPOGEN [Concomitant]

REACTIONS (7)
  - ATRIAL FIBRILLATION [None]
  - GENERAL PHYSICAL HEALTH DETERIORATION [None]
  - HYPOTENSION [None]
  - NEUTROPENIC SEPSIS [None]
  - PYREXIA [None]
  - RENAL FAILURE ACUTE [None]
  - RESPIRATORY RATE INCREASED [None]
